FAERS Safety Report 5708328-X (Version None)
Quarter: 2008Q2

REPORT INFORMATION
  Report Type: 
  Country: None (occurrence: None)
  Receive Date: 20080417
  Receipt Date: 20080410
  Transmission Date: 20081010
  Serious: Yes (Death)
  Sender: FDA-Public Use
  Company Number: US-KINGPHARMUSA00001-K200800424

PATIENT

DRUGS (2)
  1. AVINZA [Suspect]
  2. PERCOCET [Concomitant]

REACTIONS (2)
  - DEATH [None]
  - OVERDOSE [None]
